FAERS Safety Report 23438303 (Version 2)
Quarter: 2024Q1

REPORT INFORMATION
  Report Type: Spontaneous
  Country: US (occurrence: US)
  Receive Date: 20240124
  Receipt Date: 20240219
  Transmission Date: 20240410
  Serious: Yes (Hospitalization, Other)
  Sender: FDA-Public Use
  Company Number: US-FreseniusKabi-FK202401106

PATIENT
  Age: 12 Year
  Sex: Male
  Weight: 31.4 kg

DRUGS (8)
  1. FLUDARABINE [Suspect]
     Active Substance: FLUDARABINE PHOSPHATE
     Indication: Acute myeloid leukaemia
     Dosage: CYCLIC (C1D1 TO C1D5) ?ROUTE OF ADMIN. SUBCUTANEOUS ( SC ) ?FORM OF ADMIN. SOLUTION FOR INFUSION
     Dates: start: 20230711, end: 20230715
  2. GILTERITINIB [Suspect]
     Active Substance: GILTERITINIB
     Indication: Acute myeloid leukaemia
     Dosage: ONCE DAILY ?ROUTE OF ADMIN. ORAL ( ORA ) ?FORM OF ADMIN. TABLET
     Route: 048
     Dates: end: 20231208
  3. GILTERITINIB [Suspect]
     Active Substance: GILTERITINIB
     Dosage: ONCE DAILY ?ROUTE OF ADMIN. ORAL ( ORA ) ?FORM OF ADMIN. TABLET
     Route: 048
     Dates: start: 20230718, end: 20230802
  4. CYTARABINE [Suspect]
     Active Substance: CYTARABINE
     Indication: Acute myeloid leukaemia
     Dosage: CYCLIC (C1D1 TO C1D5) ?ROUTE OF ADMIN. SUBCUTANEOUS ( SC ) ?FORM OF ADMIN. SOLUTION FOR INFUSION
     Route: 058
     Dates: start: 20230711, end: 20230715
  5. GRANULOCYTE COLONY-STIMULATING FACTOR NOS [Suspect]
     Active Substance: GRANULOCYTE COLONY-STIMULATING FACTOR NOS
     Indication: Acute myeloid leukaemia
     Dosage: CYCLIC (C1D1 TO C1D5) ?ROUTE OF ADMIN. SUBCUTANEOUS ( SC ) ?FORM OF ADMIN. INJECTION
     Route: 058
     Dates: start: 20230710, end: 20230715
  6. VORICONAZOLE [Concomitant]
     Active Substance: VORICONAZOLE
     Indication: Antifungal prophylaxis
     Dates: start: 20231120, end: 20231208
  7. MIRTAZAPINE [Concomitant]
     Active Substance: MIRTAZAPINE
     Indication: Sleep disorder
     Dates: start: 20231204, end: 20231211
  8. MICAFUNGIN [Concomitant]
     Active Substance: MICAFUNGIN SODIUM
     Indication: Product used for unknown indication

REACTIONS (4)
  - Clostridium difficile infection [Recovered/Resolved with Sequelae]
  - Alanine aminotransferase increased [Unknown]
  - Aspartate aminotransferase increased [Unknown]
  - Blood bilirubin increased [Unknown]

NARRATIVE: CASE EVENT DATE: 20230923
